FAERS Safety Report 7347212-5 (Version None)
Quarter: 2011Q1

REPORT INFORMATION
  Report Type: 
  Country: None (occurrence: None)
  Receive Date: 20110311
  Receipt Date: 20110308
  Transmission Date: 20110831
  Serious: Yes (Other)
  Sender: FDA-Public Use
  Company Number: DE-PFIZER INC-2011050252

PATIENT
  Age: 53 Year
  Sex: Female

DRUGS (1)
  1. TORISEL [Suspect]
     Dosage: UNK
     Route: 042
     Dates: start: 20100801

REACTIONS (1)
  - DEVICE OCCLUSION [None]
